FAERS Safety Report 6328231-4 (Version None)
Quarter: 2009Q3

REPORT INFORMATION
  Report Type: 
  Country: None (occurrence: None)
  Receive Date: 20090825
  Receipt Date: 20090306
  Transmission Date: 20100115
  Serious: No
  Sender: FDA-Public Use
  Company Number: US-ABBOTT-09P-163-0561288-00

PATIENT
  Sex: Female
  Weight: 59.02 kg

DRUGS (4)
  1. SYNTHROID [Suspect]
     Indication: HYPOTHYROIDISM
     Route: 048
     Dates: start: 20081201
  2. LIPITOR [Concomitant]
     Indication: BLOOD CHOLESTEROL INCREASED
     Route: 048
  3. NORVASC [Concomitant]
     Indication: HYPERTENSION
     Route: 048
  4. ZYRTEC [Concomitant]
     Indication: SEASONAL ALLERGY
     Route: 048

REACTIONS (2)
  - DISORIENTATION [None]
  - DIZZINESS [None]
